FAERS Safety Report 11564941 (Version 1)
Quarter: 2015Q3

REPORT INFORMATION
  Report Type: Report from Study
  Country: US (occurrence: US)
  Receive Date: 20150928
  Receipt Date: 20150928
  Transmission Date: 20151125
  Serious: No
  Sender: FDA-Public Use
  Company Number: US-EXELIXIS-CABO-14004938

PATIENT
  Age: 53 Year
  Sex: Female

DRUGS (12)
  1. ZOMETA [Concomitant]
     Active Substance: ZOLEDRONIC ACID
  2. AYR SPR 0.65% [Concomitant]
  3. PERCOCET [Concomitant]
     Active Substance: ACETAMINOPHEN\OXYCODONE HYDROCHLORIDE
  4. COMETRIQ [Suspect]
     Active Substance: CABOZANTINIB S-MALATE
     Dosage: 120 MG, QD
     Route: 048
     Dates: start: 20141212, end: 20150128
  5. COMETRIQ [Suspect]
     Active Substance: CABOZANTINIB S-MALATE
     Dosage: ALTERNATE 120 MG  AND  100 MG QOD
     Route: 048
     Dates: start: 20150611
  6. LISINOPRIL. [Concomitant]
     Active Substance: LISINOPRIL
  7. COMETRIQ [Suspect]
     Active Substance: CABOZANTINIB S-MALATE
     Indication: THYROID CANCER
     Dosage: 100 MG, QD
     Route: 048
     Dates: start: 20141025, end: 20141211
  8. TYLENOL [Concomitant]
     Active Substance: ACETAMINOPHEN
  9. DIURETIC [Concomitant]
     Active Substance: UNSPECIFIED INGREDIENT
  10. COMETRIQ [Suspect]
     Active Substance: CABOZANTINIB S-MALATE
     Dosage: 120 MG, QOD
     Route: 048
     Dates: start: 20150129
  11. MULTIVITAMIN [Concomitant]
     Active Substance: VITAMINS
  12. ADVIL [Concomitant]
     Active Substance: IBUPROFEN

REACTIONS (19)
  - Nasopharyngitis [Unknown]
  - Glossodynia [Unknown]
  - Ocular hyperaemia [Unknown]
  - Cough [Unknown]
  - Vomiting [Unknown]
  - Gingival disorder [Unknown]
  - Hair colour changes [Unknown]
  - Dysphonia [Unknown]
  - Eye pain [Unknown]
  - Abdominal pain upper [Unknown]
  - Pain [Unknown]
  - Nausea [Unknown]
  - Joint swelling [Unknown]
  - Peripheral swelling [Unknown]
  - Oropharyngeal pain [Unknown]
  - Bone pain [Unknown]
  - Blood pressure increased [Unknown]
  - Diarrhoea [Unknown]
  - Nasal dryness [Unknown]

NARRATIVE: CASE EVENT DATE: 2014
